FAERS Safety Report 20562963 (Version 5)
Quarter: 2022Q4

REPORT INFORMATION
  Report Type: Report from Study
  Country: ES (occurrence: ES)
  Receive Date: 20220307
  Receipt Date: 20221021
  Transmission Date: 20230112
  Serious: Yes (Death, Life-Threatening, Hospitalization, Disabling, Other)
  Sender: FDA-Public Use
  Company Number: ES-ABBVIE-22K-144-4303449-00

PATIENT
  Age: 76 Year
  Sex: Male

DRUGS (18)
  1. HUMIRA [Suspect]
     Active Substance: ADALIMUMAB
     Indication: Colitis ulcerative
     Route: 058
     Dates: start: 20140102, end: 20180622
  2. DUTASTERIDE [Concomitant]
     Active Substance: DUTASTERIDE
     Indication: Prostatic disorder
     Route: 048
     Dates: start: 20110131
  3. ALLOPURINOL [Concomitant]
     Active Substance: ALLOPURINOL
     Indication: Hyperuricaemia
     Route: 048
     Dates: start: 1995
  4. DOXAZOSIN MESYLATE [Concomitant]
     Active Substance: DOXAZOSIN MESYLATE
     Indication: Hypertension
     Route: 048
     Dates: start: 20131016
  5. ENOXAPARIN SODIUM [Concomitant]
     Active Substance: ENOXAPARIN SODIUM
     Indication: Surgery
     Dosage: 4000 UI
     Route: 058
     Dates: start: 20200817, end: 20200915
  6. ENOXAPARIN SODIUM [Concomitant]
     Active Substance: ENOXAPARIN SODIUM
     Indication: Surgery
     Dosage: 4000 UI
     Route: 058
     Dates: start: 20200928, end: 20201017
  7. AMOXICILLIN\CLAVULANIC ACID [Concomitant]
     Active Substance: AMOXICILLIN\CLAVULANIC ACID
     Indication: Surgery
     Dosage: 875/125 MG (MILLIGRAM(S))
     Route: 048
     Dates: start: 20200928, end: 20201004
  8. PREDNISONE [Concomitant]
     Active Substance: PREDNISONE
     Indication: Colitis ulcerative
     Route: 048
     Dates: start: 20200405, end: 2020
  9. PREDNISONE [Concomitant]
     Active Substance: PREDNISONE
     Indication: Colitis ulcerative
     Route: 048
     Dates: start: 20200421, end: 2020
  10. IRON [Concomitant]
     Active Substance: IRON
     Indication: Gastrointestinal haemorrhage
     Route: 048
     Dates: start: 20200911, end: 20201111
  11. METOCLOPRAMIDE [Concomitant]
     Active Substance: METOCLOPRAMIDE
     Indication: Malignant melanoma
     Dosage: TIME INTERVAL: AS NECESSARY
     Dates: start: 20201121
  12. OMEPRAZOLE [Concomitant]
     Active Substance: OMEPRAZOLE
     Indication: Malignant melanoma
     Route: 048
     Dates: start: 20201120
  13. DEXAMETHASONE [Concomitant]
     Active Substance: DEXAMETHASONE
     Indication: Malignant melanoma
     Route: 048
     Dates: start: 20201121
  14. LOPERAMIDE [Concomitant]
     Active Substance: LOPERAMIDE
     Indication: Immune-mediated enterocolitis
     Route: 048
     Dates: start: 20200421, end: 20200421
  15. LOPERAMIDE [Concomitant]
     Active Substance: LOPERAMIDE
     Indication: Immune-mediated enterocolitis
     Dosage: IMMUNE-MEDIATED ENTERITIS
     Route: 048
     Dates: start: 20200421, end: 2020
  16. HALOPERIDOL [Concomitant]
     Active Substance: HALOPERIDOL
     Indication: Product used for unknown indication
     Route: 058
     Dates: start: 20201121
  17. FENTANYL [Concomitant]
     Active Substance: FENTANYL
     Indication: Malignant melanoma
     Dosage: DOSAGE: 2000 MCG
     Route: 058
     Dates: start: 20201121
  18. BUSCAPINA [Concomitant]
     Indication: Malignant melanoma
     Route: 058
     Dates: start: 20201121

REACTIONS (2)
  - Malignant melanoma [Fatal]
  - Intussusception [Recovered/Resolved]

NARRATIVE: CASE EVENT DATE: 20201006
